FAERS Safety Report 8313438-7 (Version None)
Quarter: 2012Q2

REPORT INFORMATION
  Report Type: 
  Country: None (occurrence: None)
  Receive Date: 20120424
  Receipt Date: 20120412
  Transmission Date: 20120825
  Serious: Yes (Hospitalization, Other)
  Sender: FDA-Public Use
  Company Number: 2009JP001623

PATIENT
  Age: 27 Year
  Sex: Male

DRUGS (20)
  1. TACROLIMUS [Suspect]
     Indication: LUPUS NEPHRITIS
     Dosage: 3 MG, /D, ORAL
     Route: 048
     Dates: start: 20070512, end: 20110501
  2. NERISONA (DIFLUCORTISONE VALERATE) [Concomitant]
  3. VOLTAREN [Suspect]
     Dosage: 75 MG,./D, ORAL
     Route: 048
     Dates: start: 20100513, end: 20101005
  4. PREDNISOLONE [Concomitant]
  5. LAC B (LACTOBACILLUS BIFIDUS, LYOPHILIZED) [Concomitant]
  6. NEUER (CETRAXATE HYDROCHLORIDE) [Concomitant]
  7. MAGNESIUM OXIDE (MAGNESIUM OXIDE) [Concomitant]
  8. FOSAMAX [Concomitant]
  9. BUFFEIRN (ACETYLSALICYLIC ACID) [Concomitant]
  10. LENDORM [Concomitant]
  11. ALBUMIN TANNATE (ALBUMIN TANNATE) [Concomitant]
  12. OLMESARTAN MEDOXOMIL [Concomitant]
  13. ONEALFA (ALFACALCIDOL) [Concomitant]
  14. LIVALO [Concomitant]
  15. LOSARTAN POTASSIUM [Concomitant]
  16. CYCLOPHOSPHAMIDE [Concomitant]
  17. GEBEN (SULFADIAZINE SILVER) [Concomitant]
  18. GASMOTIN (MOSAPRIDE CITRATE) [Concomitant]
  19. CALCIUM LACTATE (CALCIUM LACTATE) [Concomitant]
  20. RABEPRAZOLE SODIUM [Concomitant]

REACTIONS (15)
  - ECZEMA [None]
  - GASTROENTERITIS [None]
  - CONDITION AGGRAVATED [None]
  - HAEMATOCHEZIA [None]
  - OSTEONECROSIS [None]
  - SJOGREN'S SYNDROME [None]
  - SKIN ULCER [None]
  - DIARRHOEA [None]
  - SKIN GRAFT [None]
  - VIRAL INFECTION [None]
  - CONSTIPATION [None]
  - ENTEROCOLITIS [None]
  - PAIN [None]
  - RENAL IMPAIRMENT [None]
  - CARDIOVASCULAR DISORDER [None]
